FAERS Safety Report 5679359-3 (Version None)
Quarter: 2008Q1

REPORT INFORMATION
  Report Type: 
  Country: None (occurrence: None)
  Receive Date: 20080321
  Receipt Date: 20080310
  Transmission Date: 20080703
  Serious: Yes (Hospitalization, Other)
  Sender: FDA-Public Use
  Company Number: 200803AGG00789

PATIENT
  Age: 68 Year
  Sex: Female

DRUGS (1)
  1. TIROFIBAN HYDROCHLORIDE (TIROFIBAN HCL) [Suspect]
     Dosage: INTRAVENOUS
     Route: 042

REACTIONS (5)
  - CHEST PAIN [None]
  - CONTUSION [None]
  - DRUG INEFFECTIVE [None]
  - EXTRAVASATION [None]
  - OVERDOSE [None]
